FAERS Safety Report 9678371 (Version 2)
Quarter: 2013Q4

REPORT INFORMATION
  Report Type: Spontaneous
  Country: BR (occurrence: BR)
  Receive Date: 20131108
  Receipt Date: 20131122
  Transmission Date: 20140711
  Serious: Yes (Other)
  Sender: FDA-Public Use
  Company Number: BR-ASTRAZENECA-2013SE81110

PATIENT
  Age: 17110 Day
  Sex: Male
  Weight: 110 kg

DRUGS (4)
  1. CRESTOR [Suspect]
     Indication: BLOOD CHOLESTEROL ABNORMAL
     Route: 048
     Dates: start: 201307
  2. GLIFAGE [Concomitant]
     Indication: DIABETES MELLITUS
     Dates: start: 2012
  3. ASPIRINA [Concomitant]
     Indication: ANTICOAGULANT THERAPY
     Dates: start: 2012
  4. UNKNOWN [Concomitant]
     Indication: HYPERTENSION

REACTIONS (1)
  - Angina unstable [Recovered/Resolved]
